FAERS Safety Report 14705920 (Version 1)
Quarter: 2018Q1

REPORT INFORMATION
  Report Type: Spontaneous
  Country: US (occurrence: US)
  Receive Date: 20180329
  Receipt Date: 20180329
  Transmission Date: 20180509
  Serious: No
  Sender: FDA-Public Use
  Company Number: None

PATIENT
  Age: 75 Year
  Sex: Male
  Weight: 131.54 kg

DRUGS (1)
  1. DAPTOMYCIN 1200 MG HOSPIRA [Suspect]
     Active Substance: DAPTOMYCIN
     Indication: STAPHYLOCOCCAL SEPSIS
     Route: 042
     Dates: start: 20180323, end: 20180323

REACTIONS (2)
  - Chills [None]
  - Dyspnoea [None]

NARRATIVE: CASE EVENT DATE: 20180323
